FAERS Safety Report 6191075-0 (Version None)
Quarter: 2009Q2

REPORT INFORMATION
  Report Type: 
  Country: None (occurrence: None)
  Receive Date: 20090513
  Receipt Date: 20090513
  Transmission Date: 20091009
  Serious: Yes (Other)
  Sender: FDA-Public Use
  Company Number: None

PATIENT
  Age: 44 Year
  Sex: Female
  Weight: 62.5964 kg

DRUGS (1)
  1. DIGOXIN [Suspect]
     Dosage: 0.125 1 EVERY OTHER DAY HAVE TAKEN DIGOXIN FOR 5 YRS WITH NO PROBLEMS TILL I GOT THIS CARACO PRODUCT
     Dates: start: 20090306

REACTIONS (7)
  - ASTHENIA [None]
  - DIZZINESS [None]
  - HYPOTENSION [None]
  - LOSS OF CONSCIOUSNESS [None]
  - PRODUCT QUALITY ISSUE [None]
  - PRURITUS [None]
  - RASH [None]
